FAERS Safety Report 8825855 (Version 1)
Quarter: 2012Q4

REPORT INFORMATION
  Report Type: 
  Country: US (occurrence: US)
  Receive Date: 20121004
  Receipt Date: 20121004
  Transmission Date: 20130627
  Serious: No
  Sender: FDA-Public Use
  Company Number: US-ASTRAZENECA-2012SE73081

PATIENT
  Sex: Female
  Weight: 81.2 kg

DRUGS (7)
  1. SEROQUEL [Suspect]
     Indication: ANXIETY
     Route: 048
     Dates: start: 201205
  2. SEROQUEL [Suspect]
     Indication: BORDERLINE PERSONALITY DISORDER
     Route: 048
     Dates: start: 201205
  3. DEPAKOTE [Concomitant]
     Indication: CONVULSION
  4. FLUOXETINE [Concomitant]
     Indication: ANXIETY
  5. FLUOXETINE [Concomitant]
     Indication: DEPRESSION
  6. LORAZEPAM [Concomitant]
     Indication: ANXIETY
  7. LORAZEPAM [Concomitant]
     Indication: DEPRESSION

REACTIONS (3)
  - Adverse event [Unknown]
  - Intentional drug misuse [Unknown]
  - Off label use [Unknown]
